FAERS Safety Report 16166687 (Version 1)
Quarter: 2019Q2

REPORT INFORMATION
  Report Type: Spontaneous
  Country: GR (occurrence: GR)
  Receive Date: 20190407
  Receipt Date: 20190407
  Transmission Date: 20190711
  Serious: Yes (Hospitalization)
  Sender: FDA-Public Use
  Company Number: GR-INGENUS PHARMACEUTICALS, LLC-INF201903-000206

PATIENT
  Age: 53 Year
  Sex: Male

DRUGS (6)
  1. FOLINIC ACID [Concomitant]
     Active Substance: LEUCOVORIN
  2. FLUOROURACIL. [Concomitant]
     Active Substance: FLUOROURACIL
  3. OXALIPLATIN. [Suspect]
     Active Substance: OXALIPLATIN
  4. CAPECITABINE. [Suspect]
     Active Substance: CAPECITABINE
  5. BEVACIZUMAB. [Concomitant]
     Active Substance: BEVACIZUMAB
  6. IRINOTECAN [Concomitant]
     Active Substance: IRINOTECAN

REACTIONS (6)
  - Hiccups [Recovered/Resolved]
  - Nausea [Recovered/Resolved]
  - Blood creatinine increased [Recovered/Resolved]
  - Gastrointestinal stoma complication [Recovered/Resolved]
  - Electrolyte imbalance [Recovered/Resolved]
  - Dysphagia [Recovered/Resolved]
